FAERS Safety Report 6844103-0 (Version None)
Quarter: 2010Q3

REPORT INFORMATION
  Report Type: 
  Country: None (occurrence: None)
  Receive Date: 20100715
  Receipt Date: 20100707
  Transmission Date: 20110219
  Serious: Yes (Other)
  Sender: FDA-Public Use
  Company Number: BR-SOLVAY-00310003260

PATIENT
  Age: 57 Year
  Sex: Female
  Weight: 70 kg

DRUGS (3)
  1. VYTORIN [Concomitant]
     Indication: ILL-DEFINED DISORDER
     Dosage: DAILY DOSE: 1 DOSAGE FORM
     Route: 048
     Dates: start: 20080101
  2. CREON [Suspect]
     Indication: PANCREATIC INSUFFICIENCY
     Dosage: DAILY DOSE: 9 DOSAGE FORM
     Route: 048
     Dates: start: 20070101, end: 20070101
  3. CREON [Suspect]
     Dosage: DAILY DOSE:  UNKNOWN, AS USED: 2 TABLETS BEFORE EACH MEAL
     Route: 048
     Dates: start: 20100518, end: 20100601

REACTIONS (10)
  - ABDOMINAL DISTENSION [None]
  - ABDOMINAL PAIN [None]
  - CONSTIPATION [None]
  - DIARRHOEA [None]
  - DRUG INEFFECTIVE [None]
  - FAECES DISCOLOURED [None]
  - HEPATIC PAIN [None]
  - MALAISE [None]
  - STEATORRHOEA [None]
  - SYNCOPE [None]
